FAERS Safety Report 9366753 (Version 3)
Quarter: 2013Q3

REPORT INFORMATION
  Report Type: Spontaneous
  Country: US (occurrence: US)
  Receive Date: 20130625
  Receipt Date: 20130807
  Transmission Date: 20140515
  Serious: No
  Sender: FDA-Public Use
  Company Number: US-PFIZER INC-2013189354

PATIENT
  Age: 71 Year
  Sex: Female
  Weight: 80.27 kg

DRUGS (3)
  1. LYRICA [Suspect]
     Indication: PAIN
     Dosage: ONE CAPSULE OF 25MG IN MORNING, ONE IN AFTERNOON AND TWO BEFORE BED TIME, 3X/DAY
     Dates: start: 200806
  2. TRAMADOL [Concomitant]
     Indication: PAIN
     Dosage: 100 MG, 4X/DAY
  3. BACLOFEN [Concomitant]
     Indication: MUSCLE RELAXANT THERAPY
     Dosage: 10 MG, 1X/DAY

REACTIONS (1)
  - Bladder disorder [Unknown]
